FAERS Safety Report 4578727-0 (Version None)
Quarter: 2005Q1

REPORT INFORMATION
  Report Type: 
  Country: None (occurrence: None)
  Receive Date: 20050211
  Receipt Date: 20050131
  Transmission Date: 20050727
  Serious: Yes (Hospitalization)
  Sender: FDA-Public Use
  Company Number: FR-GLAXOSMITHKLINE-B0369254A

PATIENT
  Age: 85 Year
  Sex: Female

DRUGS (4)
  1. REQUIP [Suspect]
     Dosage: 1UNIT PER DAY
     Route: 048
     Dates: start: 20041227, end: 20041227
  2. TEMESTA [Suspect]
     Dosage: 1MG PER DAY
     Route: 048
     Dates: end: 20041227
  3. DOLIPRANE [Suspect]
     Route: 048
     Dates: end: 20041227
  4. LEVOTHYROX [Concomitant]
     Route: 048

REACTIONS (7)
  - EOSINOPHIL COUNT INCREASED [None]
  - EYELID OEDEMA [None]
  - OEDEMA PERIPHERAL [None]
  - PRURITUS [None]
  - RASH ERYTHEMATOUS [None]
  - RASH PSORIAFORM [None]
  - TOXIC SKIN ERUPTION [None]
